FAERS Safety Report 9281798 (Version 2)
Quarter: 2013Q4

REPORT INFORMATION
  Report Type: Spontaneous
  Country: US (occurrence: US)
  Receive Date: 20130510
  Receipt Date: 20131011
  Transmission Date: 20140711
  Serious: Yes (Hospitalization)
  Sender: FDA-Public Use
  Company Number: US-B.I. PHARMACEUTICALS,INC./RIDGEFIELD-2013-BI-13027BP

PATIENT
  Age: 75 Year
  Sex: Male
  Weight: 115.67 kg

DRUGS (23)
  1. PRADAXA [Suspect]
     Indication: ANTICOAGULANT THERAPY
     Dosage: 300 MG
     Dates: start: 20110608, end: 20120330
  2. PRADAXA [Suspect]
     Indication: ATRIAL FIBRILLATION
  3. ISOSORBIDE [Concomitant]
     Dosage: 30 MG
  4. FLOMAX [Concomitant]
     Dosage: 0.4 MG
  5. DAILY SENIOR MULTIVITAMIN [Concomitant]
  6. JANUVIA [Concomitant]
     Dosage: 100 MG
  7. FINASTERIDE [Concomitant]
     Dosage: 5 MG
  8. LISINOPRIL [Concomitant]
     Dosage: 0.2 MG
  9. OMEGA #3 [Concomitant]
     Dosage: 1200 MG
  10. COLON CLEANER [Concomitant]
  11. SAL PALMETTO [Concomitant]
     Dosage: 320 MG
  12. NAPROXEN [Concomitant]
     Dosage: 220 MG
  13. ASPIRIN [Concomitant]
     Dosage: 81 MG
     Dates: end: 20120330
  14. GEMFIBROZIL [Concomitant]
     Dosage: 1200 MG
  15. FUROSEMIDE [Concomitant]
     Dosage: 80 MG
  16. METFORMIN [Concomitant]
     Dosage: 3000 MG
  17. POTASSIUM [Concomitant]
     Dosage: 40 MEQ
  18. NASAL SPRAY [Concomitant]
     Route: 045
  19. INHALER [Concomitant]
     Route: 055
  20. CAL-MAG-ZINC [Concomitant]
  21. CRANBERRY [Concomitant]
  22. BILBERRY [Concomitant]
  23. CALCET [Concomitant]

REACTIONS (3)
  - Upper gastrointestinal haemorrhage [Unknown]
  - Gastric ulcer [Unknown]
  - Haemorrhagic anaemia [Unknown]
